FAERS Safety Report 19793041 (Version 1)
Quarter: 2021Q3

REPORT INFORMATION
  Report Type: Spontaneous
  Country: FR (occurrence: FR)
  Receive Date: 20210906
  Receipt Date: 20210906
  Transmission Date: 20211014
  Serious: Yes (Hospitalization)
  Sender: FDA-Public Use
  Company Number: FR-PFIZER INC-202101107412

PATIENT
  Age: 25 Year
  Sex: Male

DRUGS (5)
  1. CANNABIS [Suspect]
     Active Substance: CANNABIS SATIVA SUBSP. INDICA TOP
     Dosage: UNK
     Route: 055
  2. PREGABALIN. [Suspect]
     Active Substance: PREGABALIN
     Dosage: 1500 MG, 1X/DAY (300 MG, 3 TO 5 TIMES DAILY)
  3. DIAZEPAM. [Suspect]
     Active Substance: DIAZEPAM
     Dosage: 80 MG, 1X/DAY
  4. ALCOOL [Suspect]
     Active Substance: ALCOHOL
     Dosage: UNK
     Route: 048
  5. CLONAZEPAM. [Suspect]
     Active Substance: CLONAZEPAM
     Dosage: 6 MG, 1X/DAY

REACTIONS (3)
  - Overdose [Unknown]
  - Drug use disorder [Not Recovered/Not Resolved]
  - Substance use disorder [Not Recovered/Not Resolved]
